FAERS Safety Report 13714427 (Version 4)
Quarter: 2017Q3

REPORT INFORMATION
  Report Type: Spontaneous
  Country: IT (occurrence: IT)
  Receive Date: 20170704
  Receipt Date: 20170803
  Transmission Date: 20171127
  Serious: Yes (Other)
  Sender: FDA-Public Use
  Company Number: IT-ROCHE-1957006

PATIENT
  Age: 68 Year
  Sex: Male
  Weight: 91 kg

DRUGS (9)
  1. OXALIPLATIN. [Suspect]
     Active Substance: OXALIPLATIN
     Indication: ADENOCARCINOMA GASTRIC
     Dosage: ON 30/JAN/2017, II CYCLE OF FOLFOX PLUS HERCEPTIN.
     Route: 042
     Dates: start: 20161219
  2. FLUOROURACIL. [Suspect]
     Active Substance: FLUOROURACIL
     Dosage: ON 30/JAN/2017, II CYCLE OF FOLFOX PLUS HERCEPTIN.
     Route: 041
     Dates: start: 20161219
  3. OXALIPLATIN. [Suspect]
     Active Substance: OXALIPLATIN
     Dosage: ON 30/JAN/2017, II CYCLE OF FOLFOX PLUS HERCEPTIN.
     Route: 042
     Dates: start: 20161219
  4. FLUOROURACIL. [Suspect]
     Active Substance: FLUOROURACIL
     Indication: ADENOCARCINOMA GASTRIC
     Dosage: ON 30/JAN/2017, II CYCLE OF FOLFOX PLUS HERCEPTIN.
     Route: 040
     Dates: start: 20161219
  5. LEVOFOLINIC ACID [Concomitant]
     Active Substance: LEVOLEUCOVORIN
     Indication: ADENOCARCINOMA GASTRIC
     Route: 042
     Dates: start: 20161219, end: 20170130
  6. ESOMEPRAZOLE SODIUM. [Concomitant]
     Active Substance: ESOMEPRAZOLE SODIUM
  7. HERCEPTIN [Suspect]
     Active Substance: TRASTUZUMAB
     Indication: ADENOCARCINOMA GASTRIC
     Dosage: ON 30/JAN/2017, III CYCLE OF FOLFOX PLUS HERCEPTIN.
     Route: 058
     Dates: start: 20161219
  8. XATRAL [Concomitant]
     Active Substance: ALFUZOSIN
  9. CLEXANE [Concomitant]
     Active Substance: ENOXAPARIN SODIUM

REACTIONS (5)
  - Oedema peripheral [Recovering/Resolving]
  - Pruritus [Recovering/Resolving]
  - Thrombocytopenia [Recovering/Resolving]
  - Hypertension [Recovering/Resolving]
  - Paraesthesia [Not Recovered/Not Resolved]

NARRATIVE: CASE EVENT DATE: 20170110
